FAERS Safety Report 4365424-X (Version None)
Quarter: 2004Q2

REPORT INFORMATION
  Report Type: 
  Country: None (occurrence: None)
  Receive Date: 20040520
  Receipt Date: 20040506
  Transmission Date: 20050107
  Serious: Yes (Other)
  Sender: FDA-Public Use
  Company Number: US-2004-025263

PATIENT
  Age: 64 Year
  Sex: Female

DRUGS (3)
  1. BETASERON (INTERFERON BETA - 1B) INJECTION, 250 ?G (MICROGRAM) [Suspect]
     Indication: MULTIPLE SCLEROSIS
     Dosage: 4 MIU, EVERY 2D, SUBCUTANEOUS
     Route: 058
     Dates: start: 20030928, end: 20040226
  2. ANTIBIOTICS() [Suspect]
     Indication: ENDODONTIC PROCEDURE
  3. TETANUS ANTITOXIN (TETANUS ANTITOXIN) [Suspect]
     Indication: ENDODONTIC PROCEDURE

REACTIONS (4)
  - DRUG HYPERSENSITIVITY [None]
  - PAIN EXACERBATED [None]
  - PAIN OF SKIN [None]
  - SNEDDON'S SYNDROME [None]
